FAERS Safety Report 7419098-1 (Version None)
Quarter: 2011Q2

REPORT INFORMATION
  Report Type: 
  Country: None (occurrence: None)
  Receive Date: 20110415
  Receipt Date: 20110403
  Transmission Date: 20111010
  Serious: Yes (Life-Threatening, Hospitalization, Other)
  Sender: FDA-Public Use
  Company Number: US-BAYER-200943705NA

PATIENT
  Age: 51 Year
  Sex: Female
  Weight: 63.492 kg

DRUGS (4)
  1. YASMIN [Suspect]
     Indication: MENSTRUATION IRREGULAR
  2. IBUPROFEN [Concomitant]
     Dosage: 400 MG, UNK
     Dates: start: 20060502, end: 20060505
  3. LEVAQUIN [Concomitant]
     Dosage: 500 MG, UNK
     Route: 048
     Dates: start: 20060502
  4. YASMIN [Suspect]
     Indication: CONTRACEPTION
     Dates: start: 20060201, end: 20060501

REACTIONS (3)
  - PULMONARY EMBOLISM [None]
  - THROMBOSIS [None]
  - LUNG DISORDER [None]
